FAERS Safety Report 17501996 (Version 1)
Quarter: 2020Q1

REPORT INFORMATION
  Report Type: Spontaneous
  Country: US (occurrence: US)
  Receive Date: 20200305
  Receipt Date: 20200305
  Transmission Date: 20200409
  Serious: No
  Sender: FDA-Public Use
  Company Number: US-TEVA-2020-US-1193784

PATIENT

DRUGS (2)
  1. FEXOFENADINE 180 MG 571 [Suspect]
     Active Substance: FEXOFENADINE HYDROCHLORIDE
     Indication: LACRIMATION INCREASED
     Route: 048
     Dates: start: 202002
  2. FEXOFENADINE 180 MG 571 [Suspect]
     Active Substance: FEXOFENADINE HYDROCHLORIDE
     Indication: THROAT IRRITATION

REACTIONS (1)
  - Drug ineffective [Unknown]

NARRATIVE: CASE EVENT DATE: 202002
